FAERS Safety Report 17509443 (Version 1)
Quarter: 2020Q1

REPORT INFORMATION
  Report Type: Spontaneous
  Country: US (occurrence: US)
  Receive Date: 20200306
  Receipt Date: 20200306
  Transmission Date: 20200409
  Serious: No
  Sender: FDA-Public Use
  Company Number: US-SA-2020SA054307

PATIENT
  Age: 16 Year
  Sex: Male

DRUGS (2)
  1. DUPIXENT [Suspect]
     Active Substance: DUPILUMAB
     Indication: DERMATITIS ATOPIC
     Dosage: UNK UNK, 1X
     Route: 058
     Dates: start: 20200212, end: 20200212
  2. DUPIXENT [Suspect]
     Active Substance: DUPILUMAB
     Dosage: 200 MG, QOW
     Route: 058
     Dates: start: 20200226

REACTIONS (6)
  - Rash [Unknown]
  - Rash erythematous [Unknown]
  - Drug ineffective [Recovering/Resolving]
  - Eczema [Recovering/Resolving]
  - Dermatitis [Unknown]
  - Burning sensation [Unknown]

NARRATIVE: CASE EVENT DATE: 202002
